FAERS Safety Report 20931565 (Version 2)
Quarter: 2022Q2

REPORT INFORMATION
  Report Type: Spontaneous
  Country: DE (occurrence: DE)
  Receive Date: 20220608
  Receipt Date: 20220608
  Transmission Date: 20220721
  Serious: Yes (Other)
  Sender: FDA-Public Use
  Company Number: DE-ADVANZ PHARMA-202205002943

PATIENT
  Sex: Female

DRUGS (2)
  1. ALPROSTADIL [Suspect]
     Active Substance: ALPROSTADIL
     Dosage: 250 MG, ALPROSTADIL IN INTRAVENOUS INFUSION IN 2 HOURS USING AN INFUSIOMAT, 4TH APPLICATION
     Route: 042
  2. ALPROSTADIL [Suspect]
     Active Substance: ALPROSTADIL

REACTIONS (5)
  - Erythema [Unknown]
  - Pain [Unknown]
  - Extravasation [Unknown]
  - Off label use [Unknown]
  - Product use issue [Unknown]
